FAERS Safety Report 7643560-X (Version None)
Quarter: 2011Q3

REPORT INFORMATION
  Report Type: 
  Country: None (occurrence: None)
  Receive Date: 20110729
  Receipt Date: 20110719
  Transmission Date: 20111222
  Serious: Yes (Other)
  Sender: FDA-Public Use
  Company Number: US-JNJFOC-20110707837

PATIENT
  Sex: Female

DRUGS (6)
  1. REMICADE [Suspect]
     Indication: COLITIS ULCERATIVE
     Dosage: 5-6 YEARS
     Route: 065
  2. REMICADE [Suspect]
     Dosage: 5-6 YEARS
     Route: 065
  3. REMICADE [Suspect]
     Dosage: 5-6 YEARS
     Route: 065
     Dates: end: 20101201
  4. REMICADE [Suspect]
     Dosage: 5-6 YEARS
     Route: 065
  5. REMICADE [Suspect]
     Dosage: 5-6 YEARS
     Route: 065
  6. REMICADE [Suspect]
     Dosage: 5-6 YEARS
     Route: 065

REACTIONS (3)
  - FUNGAL INFECTION [None]
  - ARTHRALGIA [None]
  - DRUG INEFFECTIVE [None]
